FAERS Safety Report 4266224-1 (Version None)
Quarter: 2004Q1

REPORT INFORMATION
  Report Type: 
  Country: None (occurrence: None)
  Receive Date: 20040106
  Receipt Date: 20031218
  Transmission Date: 20041129
  Serious: Yes (Other)
  Sender: FDA-Public Use
  Company Number: 2003-00794FE

PATIENT
  Age: 22 Year
  Sex: Female

DRUGS (2)
  1. PENTASA [Suspect]
     Indication: COLITIS ULCERATIVE
     Dosage: 3 G ORALLY
     Route: 048
     Dates: start: 20030801, end: 20031128
  2. PENTASA [Suspect]
     Indication: COLITIS ULCERATIVE
     Dosage: 1 G PRN PER RECTAL
     Route: 054

REACTIONS (5)
  - ALVEOLITIS ALLERGIC [None]
  - HEART RATE INCREASED [None]
  - IRON DEFICIENCY ANAEMIA [None]
  - LUNG DISORDER [None]
  - PLEURAL DISORDER [None]
